FAERS Safety Report 5430073-9 (Version None)
Quarter: 2007Q3

REPORT INFORMATION
  Report Type: 
  Country: None (occurrence: None)
  Receive Date: 20070829
  Receipt Date: 20070817
  Transmission Date: 20080115
  Serious: Yes (Other)
  Sender: FDA-Public Use
  Company Number: US-PFIZER INC-2007069457

PATIENT
  Age: 93 Year
  Sex: Female

DRUGS (2)
  1. XALATAN [Suspect]
     Indication: GLAUCOMA
     Route: 047
  2. COSOPT [Concomitant]

REACTIONS (1)
  - MACULAR DEGENERATION [None]
